FAERS Safety Report 5817510-2 (Version None)
Quarter: 2008Q3

REPORT INFORMATION
  Report Type: 
  Country: None (occurrence: None)
  Receive Date: 20080722
  Receipt Date: 20080701
  Transmission Date: 20090109
  Serious: No
  Sender: FDA-Public Use
  Company Number: US-BAYER-200812673BCC

PATIENT
  Age: 16 Month
  Sex: Male
  Weight: 9.979 kg

DRUGS (2)
  1. ALEVE [Suspect]
     Indication: ACCIDENTAL EXPOSURE
     Dosage: TOTAL DAILY DOSE: 220 MG  UNIT DOSE: 220 MG
     Route: 048
     Dates: start: 20080630, end: 20080630
  2. CEFDINIR [Concomitant]
     Dosage: TOTAL DAILY DOSE: 125 MG  UNIT DOSE: 62.5 MG
     Route: 048

REACTIONS (1)
  - FEELING ABNORMAL [None]
